FAERS Safety Report 14715252 (Version 1)
Quarter: 2018Q2

REPORT INFORMATION
  Report Type: Spontaneous
  Country: GB (occurrence: GB)
  Receive Date: 20180404
  Receipt Date: 20180404
  Transmission Date: 20180711
  Serious: Yes (Life-Threatening, Hospitalization, Other)
  Sender: FDA-Public Use
  Company Number: GB-MYLANLABS-2018M1020379

PATIENT
  Age: 77 Year
  Sex: Female
  Weight: 52.2 kg

DRUGS (1)
  1. AZATHIOPRINE. [Suspect]
     Active Substance: AZATHIOPRINE
     Indication: CROHN^S DISEASE
     Dosage: 100 MG, QD
     Route: 048
     Dates: start: 20171017, end: 20171023

REACTIONS (5)
  - Abnormal loss of weight [Unknown]
  - Abdominal pain [Unknown]
  - Pancreatitis acute [Recovering/Resolving]
  - Rectal haemorrhage [Unknown]
  - Amylase increased [Recovering/Resolving]

NARRATIVE: CASE EVENT DATE: 20171020
